FAERS Safety Report 26101362 (Version 2)
Quarter: 2025Q4

REPORT INFORMATION
  Report Type: Spontaneous
  Country: US (occurrence: US)
  Receive Date: 20251128
  Receipt Date: 20251204
  Transmission Date: 20260117
  Serious: Yes (Other)
  Sender: TORRENT PHARMA INC.
  Company Number: US-TORRENT-00014623

PATIENT
  Age: 69 Year
  Sex: Female

DRUGS (1)
  1. OLANZAPINE [Suspect]
     Active Substance: OLANZAPINE
     Indication: Antipsychotic therapy
     Dosage: UNKNOWN
     Route: 065

REACTIONS (4)
  - Torticollis [Recovered/Resolved]
  - Corticobasal degeneration [Unknown]
  - Condition aggravated [Unknown]
  - Unmasking of previously unidentified disease [Unknown]
